FAERS Safety Report 7936265-9 (Version None)
Quarter: 2011Q4

REPORT INFORMATION
  Report Type: 
  Country: None (occurrence: None)
  Receive Date: 20111121
  Receipt Date: 20111108
  Transmission Date: 20120403
  Serious: Yes (Life-Threatening, Hospitalization)
  Sender: FDA-Public Use
  Company Number: 2011MA016279

PATIENT
  Age: 70 Year
  Sex: Male

DRUGS (3)
  1. HALOPERIDOL [Suspect]
     Indication: PRODUCT USED FOR UNKNOWN INDICATION
  2. HALOPERIDOL LACTATE [Suspect]
     Indication: PRODUCT USED FOR UNKNOWN INDICATION
  3. MOXIFLOXACIN HYDROCHLORIDE [Suspect]
     Indication: PRODUCT USED FOR UNKNOWN INDICATION

REACTIONS (6)
  - VENTRICULAR TACHYCARDIA [None]
  - ELECTROCARDIOGRAM T WAVE ABNORMAL [None]
  - LOSS OF CONSCIOUSNESS [None]
  - ELECTROCARDIOGRAM QT PROLONGED [None]
  - RESPIRATORY TRACT INFECTION [None]
  - BLOOD MAGNESIUM DECREASED [None]
